FAERS Safety Report 11059278 (Version 1)
Quarter: 2015Q2

REPORT INFORMATION
  Report Type: Spontaneous
  Country: US (occurrence: US)
  Receive Date: 20150423
  Receipt Date: 20150423
  Transmission Date: 20150821
  Serious: No
  Sender: FDA-Public Use
  Company Number: US-009507513-1504USA000910

PATIENT
  Sex: Female

DRUGS (1)
  1. ZETIA [Suspect]
     Active Substance: EZETIMIBE
     Dosage: ONCE DAILY IN THE EVENING
     Route: 048

REACTIONS (1)
  - Myalgia [Unknown]
